FAERS Safety Report 6459411-5 (Version None)
Quarter: 2009Q4

REPORT INFORMATION
  Report Type: 
  Country: None (occurrence: None)
  Receive Date: 20091127
  Receipt Date: 20090819
  Transmission Date: 20100525
  Serious: No
  Sender: FDA-Public Use
  Company Number: US-AMGEN-KDL360578

PATIENT
  Sex: Male

DRUGS (4)
  1. ENBREL [Suspect]
     Indication: PSORIASIS
     Dates: start: 20090501
  2. ATARAX [Concomitant]
  3. FLEXERIL [Concomitant]
  4. UNSPECIFIED ANTIHYPERTENSIVE AGENT [Concomitant]

REACTIONS (1)
  - PSORIASIS [None]
